FAERS Safety Report 7868597 (Version 2)
Quarter: 2012Q4

REPORT INFORMATION
  Report Type: 
  Country: US (occurrence: US)
  Receive Date: 20110323
  Receipt Date: 20121210
  Transmission Date: 20130627
  Serious: Yes (Hospitalization)
  Sender: FDA-Public Use
  Company Number: US-US-EMD SERONO, INC.-232721J09USA

PATIENT
  Sex: Male
  Weight: 91 kg

DRUGS (8)
  1. REBIF [Suspect]
     Indication: MULTIPLE SCLEROSIS
     Route: 058
     Dates: start: 20080722
  2. REBIF [Suspect]
     Dates: start: 201102
  3. XANAX [Concomitant]
     Indication: ANXIETY
     Dosage: about 15 years
  4. XANAX [Concomitant]
     Indication: SLEEP DISORDER
  5. UNSPECIFIED MEDICATIONS [Concomitant]
     Indication: PRODUCT USED FOR UNKNOWN INDICATION
  6. B12 SHOTS [Concomitant]
     Indication: VITAMIN SUPPLEMENTATION
     Route: 065
  7. MS CONTIN [Concomitant]
     Indication: PRODUCT USED FOR UNKNOWN INDICATION
  8. OXYCODONE [Concomitant]
     Indication: PRODUCT USED FOR UNKNOWN INDICATION

REACTIONS (1)
  - Convulsion [Recovered/Resolved]
